FAERS Safety Report 14726810 (Version 1)
Quarter: 2018Q2

REPORT INFORMATION
  Report Type: Spontaneous
  Country: FR (occurrence: FR)
  Receive Date: 20180406
  Receipt Date: 20180406
  Transmission Date: 20180711
  Serious: Yes (Other)
  Sender: FDA-Public Use
  Company Number: FR-MERCK KGAA-2045260

PATIENT
  Age: 64 Year
  Sex: Female
  Weight: 52 kg

DRUGS (2)
  1. NOVOTHYROX [Suspect]
     Active Substance: LEVOTHYROXINE SODIUM
     Indication: HYPOTHYROIDISM
     Route: 048
     Dates: start: 2017, end: 201708
  2. LEVOTHYROX 100 NF [Suspect]
     Active Substance: LEVOTHYROXINE SODIUM
     Route: 048
     Dates: start: 2017, end: 201709

REACTIONS (53)
  - Blood cholesterol increased [None]
  - High density lipoprotein increased [None]
  - Feeling abnormal [Not Recovered/Not Resolved]
  - Secretion discharge [Not Recovered/Not Resolved]
  - Crying [Not Recovered/Not Resolved]
  - Musculoskeletal chest pain [Not Recovered/Not Resolved]
  - Disturbance in attention [Not Recovered/Not Resolved]
  - Somnolence [Not Recovered/Not Resolved]
  - Neutrophil count decreased [None]
  - Hyperthyroidism [Not Recovered/Not Resolved]
  - Balance disorder [Not Recovered/Not Resolved]
  - Mood altered [Not Recovered/Not Resolved]
  - Apathy [Not Recovered/Not Resolved]
  - Aggression [Not Recovered/Not Resolved]
  - Asthenia [Not Recovered/Not Resolved]
  - Memory impairment [Not Recovered/Not Resolved]
  - Libido decreased [Not Recovered/Not Resolved]
  - Headache [Not Recovered/Not Resolved]
  - Trichorrhexis [Not Recovered/Not Resolved]
  - Eye pain [Not Recovered/Not Resolved]
  - Speech disorder [Not Recovered/Not Resolved]
  - Hot flush [Not Recovered/Not Resolved]
  - Confusional state [Not Recovered/Not Resolved]
  - Social avoidant behaviour [Not Recovered/Not Resolved]
  - Lethargy [Not Recovered/Not Resolved]
  - Decreased interest [Not Recovered/Not Resolved]
  - Sleep apnoea syndrome [Not Recovered/Not Resolved]
  - Swollen tongue [Not Recovered/Not Resolved]
  - Pain [Not Recovered/Not Resolved]
  - Impatience [Not Recovered/Not Resolved]
  - Irritability [Not Recovered/Not Resolved]
  - Decreased appetite [Not Recovered/Not Resolved]
  - Renal pain [Not Recovered/Not Resolved]
  - Breast pain [Not Recovered/Not Resolved]
  - Rapid eye movements sleep abnormal [Not Recovered/Not Resolved]
  - Aphthous ulcer [Not Recovered/Not Resolved]
  - Red blood cell sedimentation rate increased [None]
  - White blood cell count decreased [None]
  - Bradyphrenia [Not Recovered/Not Resolved]
  - Aphasia [Not Recovered/Not Resolved]
  - Tachycardia [Not Recovered/Not Resolved]
  - Fatigue [Not Recovered/Not Resolved]
  - Blood cholesterol increased [None]
  - Insomnia [Not Recovered/Not Resolved]
  - Pyrexia [Not Recovered/Not Resolved]
  - Gastrointestinal disorder [Not Recovered/Not Resolved]
  - Dizziness [Not Recovered/Not Resolved]
  - Hyperhidrosis [Not Recovered/Not Resolved]
  - Mean cell haemoglobin [None]
  - Eye discharge [Not Recovered/Not Resolved]
  - Dysphagia [Not Recovered/Not Resolved]
  - Weight decreased [Not Recovered/Not Resolved]
  - Loss of personal independence in daily activities [Not Recovered/Not Resolved]

NARRATIVE: CASE EVENT DATE: 201706
